FAERS Safety Report 8142175-7 (Version None)
Quarter: 2012Q1

REPORT INFORMATION
  Report Type: 
  Country: None (occurrence: None)
  Receive Date: 20120216
  Receipt Date: 20120203
  Transmission Date: 20120608
  Serious: Yes (Death, Other)
  Sender: FDA-Public Use
  Company Number: JP-ROCHE-1038597

PATIENT
  Age: 81 Year
  Sex: Male

DRUGS (1)
  1. ALTEPLASE [Suspect]
     Indication: EMBOLIC STROKE
     Dosage: 0.6 MG/KG, 10% AS BOLUS, 90% AS CONTINUOUS INFUSION OVER 60 MIN
     Route: 042

REACTIONS (8)
  - EMBOLIC STROKE [None]
  - COMA [None]
  - QUADRIPLEGIA [None]
  - APNOEA [None]
  - BRAIN OEDEMA [None]
  - MULTI-ORGAN FAILURE [None]
  - CARDIOPULMONARY FAILURE [None]
  - DRUG INEFFECTIVE [None]
